FAERS Safety Report 8426179-2 (Version None)
Quarter: 2012Q2

REPORT INFORMATION
  Report Type: 
  Country: None (occurrence: None)
  Receive Date: 20120611
  Receipt Date: 20120529
  Transmission Date: 20120825
  Serious: Yes (Death, Hospitalization)
  Sender: FDA-Public Use
  Company Number: ES-BRISTOL-MYERS SQUIBB COMPANY-16326571

PATIENT
  Age: 62 Year
  Sex: Male

DRUGS (13)
  1. PLACEBO [Suspect]
     Indication: PROSTATE CANCER
     Route: 042
     Dates: start: 20111125, end: 20111216
  2. OXYNORM [Concomitant]
     Route: 042
     Dates: start: 20120109, end: 20120113
  3. ZOLADEX [Concomitant]
     Dates: start: 20111125, end: 20120102
  4. CALCIUM-SANDOZ [Concomitant]
     Dates: start: 20110114, end: 20120102
  5. METAMIZOL [Concomitant]
     Dates: start: 20120110, end: 20120112
  6. IPILIMUMAB [Suspect]
     Indication: PROSTATE CANCER
     Route: 042
     Dates: start: 20111125, end: 20111216
  7. DEXKETOPROFEN TROMETAMOL [Concomitant]
     Dates: start: 20120107, end: 20120112
  8. MICARDIS [Concomitant]
     Dates: start: 20100101
  9. DOMPERIDONE [Concomitant]
     Dates: start: 20120107, end: 20120112
  10. METOCLOPRAMIDE HYDROCHLORIDE [Concomitant]
     Dates: start: 20120107, end: 20120112
  11. FUROSEMIDE [Concomitant]
     Route: 042
     Dates: start: 20120110, end: 20120112
  12. DEXAMETHASONE [Concomitant]
     Dates: start: 20120112, end: 20120112
  13. ENOXAPARIN [Concomitant]
     Dates: start: 20120107, end: 20120112

REACTIONS (2)
  - DEATH [None]
  - TUMOUR PAIN [None]
